FAERS Safety Report 7539774-X (Version None)
Quarter: 2011Q2

REPORT INFORMATION
  Report Type: 
  Country: None (occurrence: None)
  Receive Date: 20110610
  Receipt Date: 20110527
  Transmission Date: 20111010
  Serious: Yes (Hospitalization, Other)
  Sender: FDA-Public Use
  Company Number: PHHY2011CH47189

PATIENT
  Age: 84 Year
  Sex: Male

DRUGS (12)
  1. AMLODIPIN ^ORIFARM^ [Concomitant]
     Dosage: UNK, DAILY
  2. METFORMIN HCL [Concomitant]
     Dosage: UNK, DAILY
  3. VOLTAREN [Suspect]
     Dosage: 150 MG, DAILY
     Route: 048
     Dates: end: 20110304
  4. ENALAPRIL MALEATE [Concomitant]
     Dosage: UNK, DAILY
     Route: 048
  5. FERROUS SULFATE TAB [Concomitant]
     Indication: MINERAL SUPPLEMENTATION
     Dosage: 500 MG, DAILY
     Route: 042
     Dates: start: 20110311, end: 20110311
  6. ASPIRIN [Concomitant]
     Dosage: 100 MG, DAILY
     Route: 048
  7. RED BLOOD CELLS [Concomitant]
     Indication: ANAEMIA
     Dosage: UNK, DAILY
     Dates: start: 20110304, end: 20110305
  8. PRAVASTATIN [Concomitant]
     Dosage: UNK, DAILY
  9. METOPROLOL SUCCINATE [Concomitant]
     Dosage: UNK, DAILY
  10. ADRENALIN IN OIL INJ [Concomitant]
     Indication: HAEMOSTASIS
     Dosage: UNK, DAILY
  11. SERTRALINE HYDROCHLORIDE [Concomitant]
     Dosage: 50 MG, DAILY
     Route: 048
  12. PANTOPRAZOLE [Concomitant]
     Dosage: UNK, DAILY

REACTIONS (11)
  - DRUG ABUSE [None]
  - HAEMOGLOBIN DECREASED [None]
  - PALLOR [None]
  - MUCOSAL DISCOLOURATION [None]
  - BONE PAIN [None]
  - MELAENA [None]
  - CARDIAC MURMUR [None]
  - GASTROINTESTINAL HAEMORRHAGE [None]
  - HAEMATOMA [None]
  - DUODENAL ULCER HAEMORRHAGE [None]
  - ANAEMIA [None]
